FAERS Safety Report 20437691 (Version 1)
Quarter: 2022Q1

REPORT INFORMATION
  Report Type: Report from Study
  Country: SA (occurrence: SA)
  Receive Date: 20220207
  Receipt Date: 20220207
  Transmission Date: 20220424
  Serious: Yes (Hospitalization)
  Sender: FDA-Public Use
  Company Number: SA-GLAXOSMITHKLINE-SA2022GSK020955

PATIENT
  Age: 58 Year
  Sex: Female

DRUGS (1)
  1. LAMOTRIGINE [Suspect]
     Active Substance: LAMOTRIGINE
     Indication: Central pain syndrome
     Dosage: 25 MG, QD
     Route: 048

REACTIONS (6)
  - Gastrointestinal injury [Unknown]
  - Gastrointestinal pain [Unknown]
  - Gastrointestinal inflammation [Unknown]
  - Reflux laryngitis [Unknown]
  - Dry mouth [Unknown]
  - Balance disorder [Unknown]
